FAERS Safety Report 22749572 (Version 3)
Quarter: 2023Q4

REPORT INFORMATION
  Report Type: Spontaneous
  Country: BR (occurrence: BR)
  Receive Date: 20230726
  Receipt Date: 20231201
  Transmission Date: 20240110
  Serious: Yes (Other)
  Sender: FDA-Public Use
  Company Number: BR-NOVOPROD-1092923

PATIENT
  Age: 44 Year
  Sex: Female
  Weight: 89 kg

DRUGS (1)
  1. OZEMPIC [Suspect]
     Active Substance: SEMAGLUTIDE
     Indication: Weight control
     Dosage: 0.25 MG, QW
     Dates: start: 20230510, end: 20230517

REACTIONS (6)
  - Anxiety [Recovered/Resolved]
  - Migraine [Recovered/Resolved]
  - Lethargy [Unknown]
  - Apathy [Unknown]
  - Fatigue [Unknown]
  - Product use in unapproved indication [Unknown]

NARRATIVE: CASE EVENT DATE: 20230510
